FAERS Safety Report 8795745 (Version 2)
Quarter: 2012Q4

REPORT INFORMATION
  Report Type: 
  Country: US (occurrence: US)
  Receive Date: 20120919
  Receipt Date: 20120925
  Transmission Date: 20130627
  Serious: Yes (Other)
  Sender: FDA-Public Use
  Company Number: US-PFIZER INC-2012225635

PATIENT
  Age: 41 Year
  Sex: Female

DRUGS (3)
  1. DOCETAXEL [Suspect]
     Indication: BREAST CANCER
     Dosage: 70 mg/m2, every 3 weeks, day 1
     Route: 042
  2. CISPLATIN [Suspect]
     Indication: BREAST CANCER
     Dosage: 70 mg/m2, every 3 weeks, day 1
     Route: 042
  3. PEGFILGRASTIM [Concomitant]
     Indication: PROPHYLAXIS

REACTIONS (4)
  - Diarrhoea haemorrhagic [Recovered/Resolved]
  - Pseudomembranous colitis [Recovered/Resolved]
  - Abdominal pain [Recovered/Resolved]
  - Leukocytosis [Recovered/Resolved]
